FAERS Safety Report 5208833-9 (Version None)
Quarter: 2006Q4

REPORT INFORMATION
  Report Type: 
  Country: None (occurrence: None)
  Receive Date: 20061101
  Receipt Date: 20060710
  Transmission Date: 20070319
  Serious: No
  Sender: FDA-Public Use
  Company Number: 2006PV017286

PATIENT
  Age: 61 Year
  Sex: Female

DRUGS (5)
  1. SYMLIN [Suspect]
     Indication: DIABETES MELLITUS NON-INSULIN-DEPENDENT
     Dosage: 120 MCG; TID; SEE IMAGE
     Dates: start: 20060101, end: 20060101
  2. SYMLIN [Suspect]
     Indication: DIABETES MELLITUS NON-INSULIN-DEPENDENT
     Dosage: 120 MCG; TID; SEE IMAGE
     Dates: start: 20060401, end: 20060101
  3. SYMLIN [Suspect]
     Indication: DIABETES MELLITUS NON-INSULIN-DEPENDENT
     Dosage: 120 MCG; TID; SEE IMAGE
     Dates: start: 20060101
  4. LANTUS [Concomitant]
  5. NOVOLOG [Concomitant]

REACTIONS (5)
  - BLOOD GLUCOSE DECREASED [None]
  - DRUG INEFFECTIVE [None]
  - NASOPHARYNGITIS [None]
  - NAUSEA [None]
  - VOMITING PROJECTILE [None]
